FAERS Safety Report 6239010-0 (Version None)
Quarter: 2009Q2

REPORT INFORMATION
  Report Type: 
  Country: None (occurrence: None)
  Receive Date: 20090622
  Receipt Date: 20090616
  Transmission Date: 20091009
  Serious: Yes (Life-Threatening)
  Sender: FDA-Public Use
  Company Number: B0578751A

PATIENT
  Sex: Male

DRUGS (2)
  1. FONDAPARINUX [Suspect]
     Indication: ACUTE CORONARY SYNDROME
     Route: 058
     Dates: start: 20090525, end: 20090602
  2. UNFRACTIONATED HEPARIN [Suspect]
     Indication: ACUTE CORONARY SYNDROME
     Dates: start: 20090528

REACTIONS (2)
  - CATHETER THROMBOSIS [None]
  - DRUG INEFFECTIVE [None]
